FAERS Safety Report 8265394-8 (Version None)
Quarter: 2012Q2

REPORT INFORMATION
  Report Type: 
  Country: None (occurrence: None)
  Receive Date: 20120406
  Receipt Date: 20120403
  Transmission Date: 20120825
  Serious: Yes (Hospitalization, Other)
  Sender: FDA-Public Use
  Company Number: US-PFIZER INC-2011305501

PATIENT
  Sex: Male

DRUGS (7)
  1. LITHIUM [Concomitant]
     Indication: DEPRESSION
     Dosage: 300 MG, UNK
     Dates: start: 20040101
  2. ALPRAZOLAM [Concomitant]
     Indication: DEPRESSION
     Dosage: 0.5 MG, UNK
     Dates: start: 20040101, end: 20110101
  3. CHANTIX [Suspect]
     Indication: SMOKING CESSATION THERAPY
     Dosage: STARTING PACK AND 1MG CONTINUING PACKS
     Route: 048
     Dates: start: 20091117, end: 20100201
  4. ZYPREXA [Concomitant]
     Indication: BIPOLAR DISORDER
  5. LITHIUM [Concomitant]
     Indication: BIPOLAR DISORDER
  6. ALPRAZOLAM [Concomitant]
     Indication: BIPOLAR DISORDER
  7. ZYPREXA [Concomitant]
     Indication: DEPRESSION
     Dosage: 2.5 MG, UNK
     Dates: start: 20040101

REACTIONS (3)
  - BIPOLAR DISORDER [None]
  - DEPRESSION [None]
  - SUICIDAL IDEATION [None]
